FAERS Safety Report 9878877 (Version 1)
Quarter: 2014Q1

REPORT INFORMATION
  Report Type: Spontaneous
  Country: FR (occurrence: FR)
  Receive Date: 20140206
  Receipt Date: 20140206
  Transmission Date: 20141002
  Serious: Yes (Life-Threatening)
  Sender: FDA-Public Use
  Company Number: FR-TEVA-460982USA

PATIENT
  Age: 81 Year
  Sex: Male

DRUGS (15)
  1. LEVACT [Suspect]
     Indication: CHRONIC LYMPHOCYTIC LEUKAEMIA
     Route: 041
     Dates: start: 20131217, end: 20131217
  2. LEVACT [Suspect]
     Indication: CHRONIC LYMPHOCYTIC LEUKAEMIA
  3. RITUXIMAB [Suspect]
     Indication: CHRONIC LYMPHOCYTIC LEUKAEMIA
     Route: 042
     Dates: start: 20131217, end: 20131217
  4. ZOCOR [Concomitant]
     Route: 065
     Dates: end: 20131226
  5. KARDEGIC [Concomitant]
     Route: 065
     Dates: end: 20131226
  6. OGAST [Concomitant]
     Route: 065
     Dates: end: 20131226
  7. NOVONORM [Concomitant]
     Route: 065
  8. HUMALOG [Concomitant]
     Route: 065
  9. LANTUS [Concomitant]
     Route: 065
  10. DAFALGAN [Concomitant]
     Route: 065
     Dates: end: 20131226
  11. INDOBIOTIC [Concomitant]
     Route: 047
     Dates: end: 20131226
  12. COZAAR [Concomitant]
     Route: 065
  13. ISOPTINE [Concomitant]
     Route: 065
     Dates: end: 20131226
  14. BACTRIM [Concomitant]
     Route: 065
  15. VALACICLOVIR [Concomitant]
     Route: 065

REACTIONS (1)
  - Myocardial infarction [Recovered/Resolved]
